FAERS Safety Report 10728294 (Version 2)
Quarter: 2015Q1

REPORT INFORMATION
  Report Type: Report from Study
  Country: US (occurrence: US)
  Receive Date: 20150121
  Receipt Date: 20150217
  Transmission Date: 20150721
  Serious: Yes (Life-Threatening, Hospitalization, Other)
  Sender: FDA-Public Use
  Company Number: PHHO2014US006987

PATIENT
  Age: 54 Year
  Sex: Male
  Weight: 104.7 kg

DRUGS (6)
  1. TACROLIMUS. [Suspect]
     Active Substance: TACROLIMUS
     Indication: LIVER TRANSPLANT
     Dosage: 1 MG, BID
     Route: 065
     Dates: start: 20140511, end: 20140606
  2. PREDNISONE. [Suspect]
     Active Substance: PREDNISONE
     Indication: IMMUNOSUPPRESSION
     Dosage: 20 MG, QD
     Route: 048
     Dates: start: 20140511
  3. PREDNISONE. [Suspect]
     Active Substance: PREDNISONE
     Dosage: 2.5 MG, QD
     Route: 048
     Dates: start: 20140523
  4. PREDNISONE. [Suspect]
     Active Substance: PREDNISONE
     Dosage: 10 MG, QD
     Route: 048
  5. FLUCONAZOLE. [Suspect]
     Active Substance: FLUCONAZOLE
     Indication: PROPHYLAXIS
     Dosage: 200 MG, QD
     Route: 065
     Dates: start: 20140605, end: 20140606
  6. CERTICAN [Suspect]
     Active Substance: EVEROLIMUS
     Indication: LIVER TRANSPLANT
     Dosage: 1 MG, BID
     Route: 065
     Dates: start: 20140606

REACTIONS (4)
  - Hepatic artery stenosis [Recovering/Resolving]
  - Acute kidney injury [Recovering/Resolving]
  - Post procedural bile leak [Recovered/Resolved]
  - Delirium [Recovering/Resolving]

NARRATIVE: CASE EVENT DATE: 20140508
